FAERS Safety Report 5635845-3 (Version None)
Quarter: 2008Q1

REPORT INFORMATION
  Report Type: 
  Country: None (occurrence: None)
  Receive Date: 20080221
  Receipt Date: 20080208
  Transmission Date: 20080703
  Serious: Yes (Other)
  Sender: FDA-Public Use
  Company Number: 2008JP000770

PATIENT
  Age: 41 Year
  Sex: Male

DRUGS (3)
  1. PROGRAF [Suspect]
     Indication: RENAL TRANSPLANT
  2. MYCOPHENOLATE MOFETIL [Concomitant]
  3. PREDNISOLONE [Concomitant]

REACTIONS (6)
  - CONVULSION [None]
  - GRANULOMA [None]
  - LOSS OF CONSCIOUSNESS [None]
  - MENINGITIS CRYPTOCOCCAL [None]
  - PLEURAL EFFUSION [None]
  - PNEUMONIA CRYPTOCOCCAL [None]
